FAERS Safety Report 6712919-7 (Version None)
Quarter: 2010Q2

REPORT INFORMATION
  Report Type: 
  Country: None (occurrence: None)
  Receive Date: 20100505
  Receipt Date: 20100505
  Transmission Date: 20101027
  Serious: Yes (Other)
  Sender: FDA-Public Use
  Company Number: None

PATIENT
  Age: 51 Year
  Sex: Male
  Weight: 97.5234 kg

DRUGS (1)
  1. LISINOPRIL [Suspect]
     Indication: HYPERTENSION
     Dosage: 10MR ONCE PO
     Route: 048
     Dates: start: 20100403, end: 20100506

REACTIONS (9)
  - BLOOD PRESSURE SYSTOLIC INCREASED [None]
  - COUGH [None]
  - ERECTILE DYSFUNCTION [None]
  - FATIGUE [None]
  - FOREIGN BODY [None]
  - PAIN IN EXTREMITY [None]
  - POSTNASAL DRIP [None]
  - SOMNOLENCE [None]
  - UPPER RESPIRATORY TRACT INFECTION [None]
